FAERS Safety Report 6460102-5 (Version None)
Quarter: 2009Q4

REPORT INFORMATION
  Report Type: 
  Country: None (occurrence: None)
  Receive Date: 20091129
  Receipt Date: 20091123
  Transmission Date: 20100525
  Serious: Yes (Death)
  Sender: FDA-Public Use
  Company Number: PHHY2009CR27558

PATIENT
  Age: 67 Year
  Sex: Female

DRUGS (5)
  1. EXELON [Suspect]
     Indication: DEMENTIA ALZHEIMER'S TYPE
     Dosage: 1.5 MG, PER DAY
     Route: 048
  2. EXELON [Suspect]
     Dosage: 3 MG, PER DAY
     Route: 048
  3. INSULIN [Concomitant]
     Dosage: 20 U SC PER DAY
  4. ASPIRINITA [Concomitant]
     Dosage: 1 DF, PER DAY
     Route: 048
  5. AKATINOL [Concomitant]
     Dosage: 1 DF, ORAL
     Route: 048

REACTIONS (1)
  - CEREBROVASCULAR ACCIDENT [None]
